FAERS Safety Report 4330796-9 (Version None)
Quarter: 2004Q1

REPORT INFORMATION
  Report Type: 
  Country: None (occurrence: None)
  Receive Date: 20040331
  Receipt Date: 20040331
  Transmission Date: 20041129
  Serious: Yes (Other)
  Sender: FDA-Public Use
  Company Number: USA040260315

PATIENT
  Age: 66 Year
  Sex: Female
  Weight: 52 kg

DRUGS (9)
  1. EVISTA [Suspect]
     Indication: OSTEOPENIA
     Dates: start: 20010101
  2. FORTEO [Suspect]
     Indication: OSTEOPENIA
     Dates: start: 20040212
  3. FOSAMAX [Concomitant]
  4. ZANTAC [Concomitant]
  5. DETROL [Concomitant]
  6. COENZYME Q10 [Concomitant]
  7. CHROMIUM PICOLINATE [Concomitant]
  8. VITAMIN B COMPLEX CAP [Concomitant]
  9. VITAMIN E [Concomitant]

REACTIONS (12)
  - BACK PAIN [None]
  - BONE PAIN [None]
  - CHEST PAIN [None]
  - CONTUSION [None]
  - FALL [None]
  - GASTROOESOPHAGEAL REFLUX DISEASE [None]
  - GROIN PAIN [None]
  - JOINT STIFFNESS [None]
  - MOVEMENT DISORDER [None]
  - MUSCLE TIGHTNESS [None]
  - MUSCULOSKELETAL STIFFNESS [None]
  - SPINAL FRACTURE [None]
